FAERS Safety Report 8010057-7 (Version None)
Quarter: 2011Q4

REPORT INFORMATION
  Report Type: 
  Country: None (occurrence: None)
  Receive Date: 20111228
  Receipt Date: 20111220
  Transmission Date: 20120403
  Serious: Yes (Hospitalization, Other)
  Sender: FDA-Public Use
  Company Number: BR-BRISTOL-MYERS SQUIBB COMPANY-16307803

PATIENT
  Age: 45 Year
  Sex: Female

DRUGS (1)
  1. ORENCIA [Suspect]
     Indication: RHEUMATOID ARTHRITIS
     Dosage: NO OF INF:3 THERAPY DATES:05AUG2011,12SEP2011 AND 24OCT2011. INTERUPTED ON NOV11
     Route: 042
     Dates: start: 20110805

REACTIONS (2)
  - CHOLELITHIASIS [None]
  - MENSTRUATION IRREGULAR [None]
